FAERS Safety Report 7969525-6 (Version None)
Quarter: 2011Q4

REPORT INFORMATION
  Report Type: 
  Country: None (occurrence: None)
  Receive Date: 20111212
  Receipt Date: 20111208
  Transmission Date: 20120403
  Serious: No
  Sender: FDA-Public Use
  Company Number: US-PFIZER INC-2011281535

PATIENT
  Sex: Female
  Weight: 60.317 kg

DRUGS (1)
  1. CELEBREX [Suspect]
     Indication: OSTEOARTHRITIS
     Dosage: 200 MG, DAILY
     Route: 048
     Dates: start: 20111112, end: 20111115

REACTIONS (5)
  - ALCOHOL INTERACTION [None]
  - ERYTHEMA [None]
  - HYPOAESTHESIA [None]
  - PRURITUS [None]
  - PARAESTHESIA [None]
